FAERS Safety Report 8522555-8 (Version None)
Quarter: 2012Q3

REPORT INFORMATION
  Report Type: 
  Country: None (occurrence: None)
  Receive Date: 20120719
  Receipt Date: 20120712
  Transmission Date: 20120928
  Serious: Yes (Other)
  Sender: FDA-Public Use
  Company Number: ES-ABBOTT-12P-144-0955438-00

PATIENT
  Sex: Male
  Weight: 102 kg

DRUGS (3)
  1. HUMIRA [Suspect]
     Dates: start: 20110110, end: 20110110
  2. HUMIRA [Suspect]
     Indication: PSORIASIS
     Dates: start: 20090701, end: 20100701
  3. HUMIRA [Suspect]

REACTIONS (1)
  - ANOGENITAL WARTS [None]
